FAERS Safety Report 6486397-X (Version None)
Quarter: 2009Q4

REPORT INFORMATION
  Report Type: 
  Country: None (occurrence: None)
  Receive Date: 20091210
  Receipt Date: 20091202
  Transmission Date: 20100525
  Serious: Yes (Other)
  Sender: FDA-Public Use
  Company Number: US-BIOGENIDEC-2009BI039264

PATIENT
  Age: 53 Year
  Sex: Female
  Weight: 99 kg

DRUGS (4)
  1. TYSABRI [Suspect]
     Indication: MULTIPLE SCLEROSIS
     Route: 042
     Dates: start: 20090609
  2. BACLOFEN [Concomitant]
     Indication: MUSCLE SPASMS
     Route: 048
  3. OXYBUTYN [Concomitant]
     Indication: NEUROGENIC BLADDER
     Route: 048
     Dates: start: 19990101
  4. LORTAB [Concomitant]
     Indication: PAIN
     Route: 048
     Dates: start: 20060101

REACTIONS (1)
  - BASAL CELL CARCINOMA [None]
